FAERS Safety Report 7493112-X (Version None)
Quarter: 2011Q2

REPORT INFORMATION
  Report Type: 
  Country: None (occurrence: None)
  Receive Date: 20110519
  Receipt Date: 20110519
  Transmission Date: 20111010
  Serious: Yes (Other)
  Sender: FDA-Public Use
  Company Number: None

PATIENT
  Age: 42 Year
  Sex: Female
  Weight: 95.2554 kg

DRUGS (1)
  1. REGLAN [Suspect]
     Indication: MIGRAINE
     Dosage: 30MG 1 IV DRIP
     Route: 041
     Dates: start: 20110517, end: 20110518

REACTIONS (1)
  - DYSTONIA [None]
